FAERS Safety Report 5820136-8 (Version None)
Quarter: 2008Q3

REPORT INFORMATION
  Report Type: 
  Country: None (occurrence: None)
  Receive Date: 20080724
  Receipt Date: 20080710
  Transmission Date: 20090109
  Serious: Yes (Hospitalization)
  Sender: FDA-Public Use
  Company Number: PHHY2008SE13752

PATIENT
  Sex: Male

DRUGS (13)
  1. ZELMAC [Suspect]
     Indication: IRRITABLE BOWEL SYNDROME
     Dosage: UNK
     Dates: start: 20060101, end: 20080311
  2. DESLORATADINE [Concomitant]
     Dosage: 5 MG
     Route: 048
  3. ASMANEX TWISTHALER [Concomitant]
     Dosage: 400 MCG
  4. NASONEX [Concomitant]
     Route: 045
  5. PERSANTINE [Concomitant]
     Dosage: 200 MG
     Route: 048
  6. MOVICOL [Concomitant]
     Route: 048
  7. ACETYLCYSTEINE [Concomitant]
     Dosage: 200 MG
     Route: 048
  8. OMEPRAZOLE [Concomitant]
  9. INOLAXOL [Concomitant]
  10. DIMETICONE [Concomitant]
     Dosage: 200 MG
  11. ATROVENT [Concomitant]
     Dosage: 40 MCG
  12. ASPIRIN [Concomitant]
     Dosage: 75 MG
     Route: 048
  13. VENTOLIN DISKUS [Concomitant]
     Dosage: 0.2 MG PER DOS

REACTIONS (9)
  - CAROTID ARTERY DISSECTION [None]
  - CEREBRAL INFARCTION [None]
  - CEREBRAL ISCHAEMIA [None]
  - DIPLOPIA [None]
  - DIZZINESS [None]
  - DYSPHAGIA [None]
  - EYE PAIN [None]
  - HYPOAESTHESIA ORAL [None]
  - NAUSEA [None]
